FAERS Safety Report 4939301-7 (Version None)
Quarter: 2006Q1

REPORT INFORMATION
  Report Type: 
  Country: None (occurrence: None)
  Receive Date: 20060310
  Receipt Date: 20050415
  Transmission Date: 20060701
  Serious: Yes (Hospitalization)
  Sender: FDA-Public Use
  Company Number: 2005AP02323

PATIENT
  Age: 28298 Day
  Sex: Female

DRUGS (22)
  1. DIPRIVAN [Suspect]
     Indication: GENERAL ANAESTHESIA
     Route: 042
     Dates: start: 20050407, end: 20050407
  2. DIPRIVAN [Suspect]
     Indication: SEDATION
     Route: 042
     Dates: start: 20050407, end: 20050407
  3. DIPRIVAN [Suspect]
     Route: 042
     Dates: start: 20050407
  4. DIPRIVAN [Suspect]
     Route: 042
     Dates: start: 20050407
  5. DORMICUM [Suspect]
     Indication: ANAESTHESIA
     Dates: start: 20050407, end: 20050407
  6. FENTANEST [Suspect]
     Indication: ANAESTHESIA
     Dates: start: 20050407, end: 20050407
  7. HERBESSER [Concomitant]
  8. PERDIPINE [Concomitant]
  9. MUSCULAX [Concomitant]
  10. NITOROL [Concomitant]
  11. PROSTAGLANDIN E1 [Concomitant]
  12. DOPAMINE [Concomitant]
  13. NICOTINAMIDE [Concomitant]
  14. MEXAN [Concomitant]
  15. MILRILA [Concomitant]
  16. HEPARIN [Concomitant]
  17. PROTAMINE SULFATE [Concomitant]
  18. RED CELLS MAP [Concomitant]
  19. FRESH FROZEN PLASMA [Concomitant]
  20. ALEVIATIN [Concomitant]
  21. CERCINE [Concomitant]
  22. RIVOTRIL [Concomitant]

REACTIONS (1)
  - DELAYED RECOVERY FROM ANAESTHESIA [None]
